FAERS Safety Report 4531195-7 (Version None)
Quarter: 2004Q4

REPORT INFORMATION
  Report Type: 
  Country: None (occurrence: None)
  Receive Date: 20041206
  Receipt Date: 20040831
  Transmission Date: 20050328
  Serious: No
  Sender: FDA-Public Use
  Company Number: USA040977052

PATIENT
  Age: 67 Year
  Sex: Male

DRUGS (2)
  1. CYMBALTA [Suspect]
     Dosage: 30 MG DAY
     Dates: start: 20040801
  2. ADDERALL 20 [Concomitant]

REACTIONS (2)
  - DEHYDRATION [None]
  - NAUSEA [None]
